FAERS Safety Report 21956251 (Version 5)
Quarter: 2023Q2

REPORT INFORMATION
  Report Type: Spontaneous
  Country: US (occurrence: US)
  Receive Date: 20230206
  Receipt Date: 20230523
  Transmission Date: 20230721
  Serious: Yes (Other)
  Sender: FDA-Public Use
  Company Number: US-SANOFI-01473228

PATIENT
  Age: 57 Year
  Sex: Female

DRUGS (2)
  1. ADMELOG [Suspect]
     Active Substance: INSULIN LISPRO
     Indication: Type 2 diabetes mellitus
     Dosage: 20 IU, TID (10-16 UNITS AND DRUG TREATMENT DURATION:SIX MONTHS)
     Dates: start: 202208
  2. INSULIN GLARGINE [Concomitant]
     Active Substance: INSULIN GLARGINE
     Dosage: 20 IU, HS

REACTIONS (1)
  - Diabetes mellitus inadequate control [Unknown]
